FAERS Safety Report 13342611 (Version 1)
Quarter: 2017Q1

REPORT INFORMATION
  Report Type: Spontaneous
  Country: None (occurrence: US)
  Receive Date: 20170316
  Receipt Date: 20170316
  Transmission Date: 20170428
  Serious: Yes (Hospitalization)
  Sender: FDA-Public Use
  Company Number: None

PATIENT
  Age: 52 Year
  Sex: Male
  Weight: 71 kg

DRUGS (4)
  1. ASPIRIN. [Concomitant]
     Active Substance: ASPIRIN
  2. LENALIDOMIDE (CC-5013) [Suspect]
     Active Substance: LENALIDOMIDE
     Dates: end: 20170307
  3. VELCADE [Suspect]
     Active Substance: BORTEZOMIB
     Dates: end: 20170304
  4. DEXAMETHASONE. [Suspect]
     Active Substance: DEXAMETHASONE
     Dates: end: 20170305

REACTIONS (4)
  - Thoracic vertebral fracture [None]
  - Insomnia [None]
  - Condition aggravated [None]
  - Pulmonary oedema [None]

NARRATIVE: CASE EVENT DATE: 20170312
